FAERS Safety Report 10365154 (Version 1)
Quarter: 2014Q3

REPORT INFORMATION
  Report Type: Spontaneous
  Country: FR (occurrence: FR)
  Receive Date: 20140806
  Receipt Date: 20140806
  Transmission Date: 20150326
  Serious: Yes (Hospitalization)
  Sender: FDA-Public Use
  Company Number: FR-AMGEN-FRASP2014057980

PATIENT
  Age: 64 Year
  Sex: Male

DRUGS (7)
  1. CASODEX [Concomitant]
     Active Substance: BICALUTAMIDE
  2. FIRMAGON [Concomitant]
     Active Substance: DEGARELIX ACETATE
  3. XGEVA [Suspect]
     Active Substance: DENOSUMAB
     Indication: PROPHYLAXIS
     Dosage: 120 MG, Q4WK
     Route: 058
     Dates: start: 201304, end: 201403
  4. DUROGESIC [Concomitant]
     Active Substance: FENTANYL
  5. DOCETAXEL [Concomitant]
     Active Substance: DOCETAXEL
     Dosage: UNK
     Dates: start: 20131001, end: 20140114
  6. JEVTANA [Concomitant]
     Active Substance: CABAZITAXEL
  7. ACTISKENAN [Concomitant]
     Active Substance: MORPHINE SULFATE

REACTIONS (1)
  - Osteonecrosis [Recovering/Resolving]

NARRATIVE: CASE EVENT DATE: 201403
